FAERS Safety Report 17503153 (Version 1)
Quarter: 2020Q1

REPORT INFORMATION
  Report Type: Spontaneous
  Country: US (occurrence: US)
  Receive Date: 20200305
  Receipt Date: 20200305
  Transmission Date: 20200409
  Serious: Yes (Death, Hospitalization, Other)
  Sender: FDA-Public Use
  Company Number: US-TEVA-2020-US-1193596

PATIENT
  Age: 23 Year
  Sex: Female

DRUGS (10)
  1. LOPERAMIDE [Suspect]
     Active Substance: LOPERAMIDE
     Indication: DRUG DEPENDENCE
     Route: 048
  2. NOREPINEPHRINE. [Suspect]
     Active Substance: NOREPINEPHRINE
     Indication: TOXICITY TO VARIOUS AGENTS
     Dosage: DRIP
     Route: 065
  3. AMIODARONE [Suspect]
     Active Substance: AMIODARONE
     Indication: TOXICITY TO VARIOUS AGENTS
     Route: 065
  4. VASOPRESSIN. [Suspect]
     Active Substance: VASOPRESSIN
     Indication: TOXICITY TO VARIOUS AGENTS
     Dosage: DRIP
     Route: 065
  5. MAGNESIUM [Suspect]
     Active Substance: MAGNESIUM
     Indication: TOXICITY TO VARIOUS AGENTS
     Route: 065
  6. NALOXONE [Suspect]
     Active Substance: NALOXONE
     Indication: TOXICITY TO VARIOUS AGENTS
     Route: 065
  7. SODIUM BICARBONATE. [Suspect]
     Active Substance: SODIUM BICARBONATE
     Indication: TOXICITY TO VARIOUS AGENTS
     Route: 065
  8. TRAZODONE [Suspect]
     Active Substance: TRAZODONE HYDROCHLORIDE
     Route: 048
  9. EPINEPHRINE. [Suspect]
     Active Substance: EPINEPHRINE
     Indication: TOXICITY TO VARIOUS AGENTS
     Dosage: DRIP
     Route: 065
  10. ATROPINE/DIPHENOXYLATE [Suspect]
     Active Substance: ATROPINE\DIPHENOXYLATE
     Indication: DRUG DEPENDENCE
     Route: 048

REACTIONS (15)
  - Brain death [Not Recovered/Not Resolved]
  - Diffuse alveolar damage [Unknown]
  - Hypotension [Unknown]
  - Brain oedema [Unknown]
  - Unresponsive to stimuli [Unknown]
  - Brain injury [Unknown]
  - Pneumonia [Unknown]
  - Cyanosis [Unknown]
  - Toxicity to various agents [Fatal]
  - Cerebral ischaemia [Unknown]
  - Drug ineffective [Unknown]
  - Pulmonary oedema [Unknown]
  - Tachycardia [Unknown]
  - Acute myocardial infarction [Unknown]
  - Embolism arterial [Unknown]
